FAERS Safety Report 10183577 (Version 1)
Quarter: 2014Q2

REPORT INFORMATION
  Report Type: Spontaneous
  Country: US (occurrence: US)
  Receive Date: 20140520
  Receipt Date: 20140520
  Transmission Date: 20141212
  Serious: Yes (Other)
  Sender: FDA-Public Use
  Company Number: US-BAXTER-2014BAX024055

PATIENT
  Age: 76 Year
  Sex: Male

DRUGS (6)
  1. DIANEAL LOW CALCIUM [Suspect]
     Indication: PERITONEAL DIALYSIS
     Route: 033
  2. DIANEAL LOW CALCIUM (ULTRABAG) [Suspect]
     Indication: PERITONEAL DIALYSIS
     Route: 033
  3. EXTRANEAL [Suspect]
     Indication: PERITONEAL DIALYSIS
     Route: 033
  4. EXTRANEAL [Suspect]
     Indication: PERITONEAL DIALYSIS
  5. COREG [Concomitant]
     Indication: CARDIAC PACEMAKER INSERTION
  6. COREG [Concomitant]
     Indication: CARDIAC DISORDER

REACTIONS (2)
  - Blood glucose decreased [Not Recovered/Not Resolved]
  - Hypotension [Not Recovered/Not Resolved]
